FAERS Safety Report 8448183-0 (Version None)
Quarter: 2012Q2

REPORT INFORMATION
  Report Type: 
  Country: None (occurrence: None)
  Receive Date: 20120613
  Receipt Date: 20120529
  Transmission Date: 20120825
  Serious: Yes (Life-Threatening, Hospitalization)
  Sender: FDA-Public Use
  Company Number: AMIT20120010

PATIENT
  Age: 33 Year
  Sex: Female

DRUGS (1)
  1. AMITRIPTYLINE HCL [Suspect]
     Indication: OVERDOSE

REACTIONS (8)
  - OVERDOSE [None]
  - DIABETIC KETOACIDOSIS [None]
  - ACUTE LUNG INJURY [None]
  - RENAL FAILURE ACUTE [None]
  - SHOCK [None]
  - RESPIRATORY FAILURE [None]
  - CARDIAC ARREST [None]
  - HYPOXIC-ISCHAEMIC ENCEPHALOPATHY [None]
